FAERS Safety Report 18734745 (Version 1)
Quarter: 2021Q1

REPORT INFORMATION
  Report Type: Spontaneous
  Country: US (occurrence: US)
  Receive Date: 20210113
  Receipt Date: 20210113
  Transmission Date: 20210419
  Serious: Yes (Other)
  Sender: FDA-Public Use
  Company Number: US-GLAXOSMITHKLINE-US2021AMR002729

PATIENT
  Sex: Female

DRUGS (1)
  1. BENLYSTA [Suspect]
     Active Substance: BELIMUMAB
     Indication: SYSTEMIC LUPUS ERYTHEMATOSUS
     Dosage: UNK UNK, WE (200 MG/ML)

REACTIONS (5)
  - Contusion [Unknown]
  - Balance disorder [Unknown]
  - Systemic lupus erythematosus [Unknown]
  - Blister [Unknown]
  - Skin discolouration [Unknown]
